FAERS Safety Report 21067400 (Version 2)
Quarter: 2022Q3

REPORT INFORMATION
  Report Type: Spontaneous
  Country: JP (occurrence: JP)
  Receive Date: 20220712
  Receipt Date: 20220830
  Transmission Date: 20221026
  Serious: Yes (Hospitalization, Other)
  Sender: FDA-Public Use
  Company Number: JP-MSD-2207JPN000703J

PATIENT
  Age: 71 Year
  Sex: Male
  Weight: 54 kg

DRUGS (2)
  1. KEYTRUDA [Suspect]
     Active Substance: PEMBROLIZUMAB
     Indication: Gastric cancer
     Dosage: 200 MG, 18 DOSES
     Route: 041
     Dates: start: 20201126, end: 20211118
  2. IRINOTECAN HYDROCHLORIDE [Concomitant]
     Active Substance: IRINOTECAN HYDROCHLORIDE
     Route: 065

REACTIONS (1)
  - Pulmonary toxicity [Recovering/Resolving]

NARRATIVE: CASE EVENT DATE: 20220414
